FAERS Safety Report 9671114 (Version 2)
Quarter: 2013Q4

REPORT INFORMATION
  Report Type: Spontaneous
  Country: US (occurrence: US)
  Receive Date: 20131106
  Receipt Date: 20131220
  Transmission Date: 20140711
  Serious: No
  Sender: FDA-Public Use
  Company Number: US-PFIZER INC-2013311621

PATIENT
  Age: 52 Year
  Sex: Female
  Weight: 81.63 kg

DRUGS (5)
  1. DEPO-TESTOSTERONE [Suspect]
     Indication: BLOOD TESTOSTERONE DECREASED
     Dosage: 200 MG, CYCLIC (EVERY FOURTEEN DAYS)
  2. RISPERDAL [Concomitant]
     Dosage: 15 MG, 1X/DAY
  3. TRAZODONE [Concomitant]
     Indication: SLEEP DISORDER
     Dosage: 150 MG, 1X/DAY
  4. MIRTAZAPINE [Concomitant]
     Indication: HALLUCINATION
     Dosage: 15 MG, 1X/DAY
  5. NAPADOL [Concomitant]
     Indication: ALCOHOLISM
     Dosage: 105 MG, 1X/DAY

REACTIONS (2)
  - Injection site pain [Unknown]
  - Drug administered at inappropriate site [Unknown]
